FAERS Safety Report 25379724 (Version 1)
Quarter: 2025Q2

REPORT INFORMATION
  Report Type: Spontaneous
  Country: CH (occurrence: CH)
  Receive Date: 20250530
  Receipt Date: 20250530
  Transmission Date: 20250717
  Serious: Yes (Hospitalization, Other)
  Sender: JOHNSON AND JOHNSON
  Company Number: None

PATIENT
  Age: 59 Year
  Sex: Female

DRUGS (2)
  1. SIMPONI [Suspect]
     Active Substance: GOLIMUMAB
     Indication: Rheumatoid arthritis
     Route: 058
     Dates: start: 2017, end: 202409
  2. SIMPONI [Suspect]
     Active Substance: GOLIMUMAB
     Dosage: THE LAST DOSE DATE WAS END OF MAR-2025.
     Route: 058
     Dates: start: 202409

REACTIONS (3)
  - Retinal artery occlusion [Not Recovered/Not Resolved]
  - Rheumatoid arthritis [Unknown]
  - Off label use [Unknown]

NARRATIVE: CASE EVENT DATE: 20240901
